FAERS Safety Report 9455384 (Version 4)
Quarter: 2014Q1

REPORT INFORMATION
  Report Type: Report from Study
  Country: BR (occurrence: BR)
  Receive Date: 20130813
  Receipt Date: 20140106
  Transmission Date: 20141002
  Serious: Yes (Other)
  Sender: FDA-Public Use
  Company Number: PHHY2013BR085539

PATIENT
  Sex: Female

DRUGS (2)
  1. FORASEQ [Suspect]
     Indication: EMPHYSEMA
     Dosage: UNK UKN, Q12H (12/400 MCG)
  2. FORASEQ [Suspect]
     Dosage: UNK (12/200 MCG)

REACTIONS (4)
  - Cough [Not Recovered/Not Resolved]
  - Dyspnoea [Not Recovered/Not Resolved]
  - Incorrect dose administered [Unknown]
  - Drug ineffective [Not Recovered/Not Resolved]
